FAERS Safety Report 15949373 (Version 1)
Quarter: 2019Q1

REPORT INFORMATION
  Report Type: Spontaneous
  Country: DE (occurrence: DE)
  Receive Date: 20190212
  Receipt Date: 20190212
  Transmission Date: 20190417
  Serious: Yes (Other)
  Sender: FDA-Public Use
  Company Number: PHHY2019DE025428

PATIENT
  Age: 75 Year
  Sex: Male

DRUGS (3)
  1. CARBIMAZOL - 1 A PHARMA [Suspect]
     Active Substance: CARBIMAZOLE
     Indication: HYPERTHYROIDISM
     Dosage: UNK (INCREASING DOSAGES)
     Route: 065
     Dates: start: 201812
  2. AMIODARONE [Suspect]
     Active Substance: AMIODARONE
     Indication: PRODUCT USED FOR UNKNOWN INDICATION
     Dosage: UNK
     Route: 065
  3. CARBIMAZOL - 1 A PHARMA [Suspect]
     Active Substance: CARBIMAZOLE
     Indication: THYROTOXIC CRISIS
     Dosage: 90 MG, UNK
     Route: 065

REACTIONS (7)
  - Hyperthyroidism [Not Recovered/Not Resolved]
  - Thyroxine increased [Not Recovered/Not Resolved]
  - Thyrotoxic crisis [Not Recovered/Not Resolved]
  - Tri-iodothyronine decreased [Not Recovered/Not Resolved]
  - Thyroxine decreased [Not Recovered/Not Resolved]
  - Tri-iodothyronine increased [Not Recovered/Not Resolved]
  - Condition aggravated [Unknown]
